FAERS Safety Report 5909713-3 (Version None)
Quarter: 2008Q4

REPORT INFORMATION
  Report Type: 
  Country: None (occurrence: None)
  Receive Date: 20081006
  Receipt Date: 20081006
  Transmission Date: 20090506
  Serious: Yes (Hospitalization)
  Sender: FDA-Public Use
  Company Number: None

PATIENT
  Age: 52 Year
  Sex: Male
  Weight: 99.7913 kg

DRUGS (1)
  1. VALPROIC ACID [Suspect]
     Indication: SCHIZOPHRENIA, DISORGANISED TYPE
     Dosage: 1, 250MG BID PO (DURATION: OVER 10 YEARS)
     Route: 048

REACTIONS (2)
  - PLEURAL EFFUSION [None]
  - PULMONARY EOSINOPHILIA [None]
